FAERS Safety Report 18510304 (Version 1)
Quarter: 2020Q4

REPORT INFORMATION
  Report Type: Spontaneous
  Country: CN (occurrence: CN)
  Receive Date: 20201117
  Receipt Date: 20201117
  Transmission Date: 20210114
  Serious: Yes (Hospitalization, Other)
  Sender: FDA-Public Use
  Company Number: CN-ACCORD-207976

PATIENT
  Age: 86 Year
  Sex: Male

DRUGS (2)
  1. CEFOPERAZONE/SULBACTAM [Concomitant]
     Active Substance: CEFOPERAZONE\SULBACTAM
     Indication: PNEUMONIA
  2. TIGECYCLINE. [Suspect]
     Active Substance: TIGECYCLINE
     Indication: PNEUMONIA
     Dosage: INITIATED WITH A 200MG?LOADING DOSE, FOLLOWED BY 100MG EVERY 12 HOUR

REACTIONS (1)
  - Hypofibrinogenaemia [Recovered/Resolved]
